FAERS Safety Report 15917664 (Version 4)
Quarter: 2025Q3

REPORT INFORMATION
  Report Type: Spontaneous
  Country: EU (occurrence: EU)
  Receive Date: 20190205
  Receipt Date: 20250722
  Transmission Date: 20251021
  Serious: Yes (Life-Threatening, Hospitalization, Other)
  Sender: AUROBINDO
  Company Number: EU-AUROBINDO-AUR-APL-2018-051312

PATIENT
  Age: 70 Year
  Sex: Female

DRUGS (3)
  1. MEMANTINE [Suspect]
     Active Substance: MEMANTINE
     Indication: Dementia Alzheimer^s type
     Route: 065
  2. QUETIAPINE [Suspect]
     Active Substance: QUETIAPINE
     Indication: Dementia Alzheimer^s type
     Route: 048
  3. SERTRALINE [Suspect]
     Active Substance: SERTRALINE HYDROCHLORIDE
     Indication: Dementia Alzheimer^s type
     Route: 065

REACTIONS (9)
  - Neuroleptic malignant syndrome [Recovered/Resolved]
  - Hypernatraemia [Recovering/Resolving]
  - Blood creatine phosphokinase increased [Recovering/Resolving]
  - Catatonia [Recovering/Resolving]
  - Hyperhidrosis [Recovering/Resolving]
  - Myoclonus [Recovering/Resolving]
  - Leukocytosis [Recovering/Resolving]
  - Pyrexia [Recovering/Resolving]
  - Musculoskeletal stiffness [Recovering/Resolving]
